FAERS Safety Report 17963223 (Version 1)
Quarter: 2020Q2

REPORT INFORMATION
  Report Type: Spontaneous
  Country: US (occurrence: US)
  Receive Date: 20200630
  Receipt Date: 20200630
  Transmission Date: 20200714
  Serious: No
  Sender: FDA-Public Use
  Company Number: None

PATIENT
  Age: 65 Year
  Sex: Female
  Weight: 65.25 kg

DRUGS (2)
  1. LEVOTHYROXINE 75MCG [Concomitant]
     Active Substance: LEVOTHYROXINE
  2. EUTHYROX [Suspect]
     Active Substance: LEVOTHYROXINE SODIUM
     Indication: HYPOTHYROIDISM
     Dosage: ?          QUANTITY:30 TABLET(S);?
     Route: 048

REACTIONS (8)
  - Asthenia [None]
  - Product complaint [None]
  - Toxicity to various agents [None]
  - Product substitution issue [None]
  - Nausea [None]
  - Vomiting [None]
  - Fatigue [None]
  - Feeling abnormal [None]

NARRATIVE: CASE EVENT DATE: 20200630
